FAERS Safety Report 25128468 (Version 2)
Quarter: 2025Q1

REPORT INFORMATION
  Report Type: Spontaneous
  Country: NZ (occurrence: NZ)
  Receive Date: 20250327
  Receipt Date: 20250331
  Transmission Date: 20250409
  Serious: Yes (Life-Threatening, Hospitalization, Other)
  Sender: TERSERA THERAPEUTICS
  Company Number: NZ-AstraZeneca-CH-00833467A

PATIENT

DRUGS (2)
  1. GOSERELIN [Suspect]
     Active Substance: GOSERELIN
     Indication: Uterine leiomyoma
     Route: 065
  2. ZOLADEX [Suspect]
     Active Substance: GOSERELIN ACETATE
     Indication: Uterine leiomyoma
     Route: 065

REACTIONS (5)
  - Streptococcal infection [Recovering/Resolving]
  - Gastric haemorrhage [Unknown]
  - Thrombosis [Unknown]
  - Deep vein thrombosis [Unknown]
  - Pulmonary embolism [Unknown]
